FAERS Safety Report 4582431-2 (Version None)
Quarter: 2005Q1

REPORT INFORMATION
  Report Type: 
  Country: None (occurrence: None)
  Receive Date: 20050127
  Receipt Date: 20040923
  Transmission Date: 20050727
  Serious: No
  Sender: FDA-Public Use
  Company Number: USA040979064

PATIENT
  Age: 8 Year
  Sex: Male
  Weight: 23 kg

DRUGS (4)
  1. STRATTERA [Suspect]
     Indication: SENSORY DISTURBANCE
     Dosage: 40 MG DAY
     Dates: start: 20040603, end: 20040923
  2. CONCERTA [Concomitant]
  3. ZYRTEC (CETIRIZINE HYDROHCLORIDE) [Concomitant]
  4. VITAMINS [Concomitant]

REACTIONS (2)
  - DRUG INEFFECTIVE [None]
  - PRESCRIBED OVERDOSE [None]
